FAERS Safety Report 8282864-7 (Version None)
Quarter: 2012Q2

REPORT INFORMATION
  Report Type: 
  Country: None (occurrence: None)
  Receive Date: 20120411
  Receipt Date: 20120329
  Transmission Date: 20120825
  Serious: Yes (Other)
  Sender: FDA-Public Use
  Company Number: 2012SA021782

PATIENT
  Sex: Female

DRUGS (1)
  1. MENTHOL / UNKNOWN / UNKNOWN [Suspect]
     Indication: ARTHRALGIA
     Dosage: TOPICAL
     Route: 061

REACTIONS (5)
  - APPLICATION SITE ERYTHEMA [None]
  - APPLICATION SITE SCAR [None]
  - APPLICATION SITE BURN [None]
  - APPLICATION SITE SWELLING [None]
  - PAIN [None]
